FAERS Safety Report 8606158-2 (Version None)
Quarter: 2012Q3

REPORT INFORMATION
  Report Type: 
  Country: None (occurrence: None)
  Receive Date: 20120820
  Receipt Date: 19960701
  Transmission Date: 20120928
  Serious: Yes (Other)
  Sender: FDA-Public Use
  Company Number: US-ROCHE-1101552

PATIENT
  Sex: Male

DRUGS (5)
  1. NITROGLYCERIN [Concomitant]
     Dosage: INCREASE TO 1000 CC
  2. ACTIVASE [Suspect]
     Indication: MYOCARDIAL INFARCTION
  3. NITROGLYCERIN [Concomitant]
     Dosage: PER MINUTE
  4. HEPARIN [Concomitant]
  5. NITROGLYCERIN [Concomitant]
     Dosage: 50 MG/250CC

REACTIONS (3)
  - CHEST PAIN [None]
  - ERYTHEMA [None]
  - SWELLING [None]
